FAERS Safety Report 15794831 (Version 2)
Quarter: 2019Q1

REPORT INFORMATION
  Report Type: Spontaneous
  Country: US (occurrence: US)
  Receive Date: 20190107
  Receipt Date: 20190114
  Transmission Date: 20190417
  Serious: Yes (Death, Other)
  Sender: FDA-Public Use
  Company Number: US-PFIZER INC-2019005461

PATIENT
  Sex: Male
  Weight: 1.55 kg

DRUGS (9)
  1. AMPICILLIN [Concomitant]
     Active Substance: AMPICILLIN
     Dosage: UNK (TWO DOSES)
     Route: 064
  2. LABETALOL HYDROCHLORIDE. [Concomitant]
     Active Substance: LABETALOL HYDROCHLORIDE
     Dosage: 100 MG, 2X/DAY
     Route: 064
  3. DEXAMETHASONE SODIUM PHOSPHATE. [Concomitant]
     Active Substance: DEXAMETHASONE SODIUM PHOSPHATE
     Dosage: UNK (ONE DOSE)
     Route: 064
  4. MAGNESIUM SULFATE. [Concomitant]
     Active Substance: MAGNESIUM SULFATE
     Dosage: UNK
     Route: 064
  5. TACROLIMUS. [Suspect]
     Active Substance: TACROLIMUS
     Indication: RENAL TRANSPLANT
     Dosage: 5 MG, 2X/DAY
     Route: 064
  6. PREDNISONE. [Concomitant]
     Active Substance: PREDNISONE
     Dosage: 7.5 MG, 2X/DAY
     Route: 064
  7. TACROLIMUS. [Suspect]
     Active Substance: TACROLIMUS
     Indication: IMMUNOSUPPRESSANT DRUG THERAPY
     Dosage: 6 MG, 2X/DAY
     Route: 064
  8. AMLODIPINE BESILATE [Concomitant]
     Active Substance: AMLODIPINE BESYLATE
     Dosage: 5 MG, 2X/DAY
     Route: 064
  9. AZATHIOPRINE. [Concomitant]
     Active Substance: AZATHIOPRINE
     Dosage: 50 MG, DAILY
     Route: 064

REACTIONS (16)
  - Right ventricular dilatation [Unknown]
  - Cardiac dysfunction [Fatal]
  - Generalised oedema [Fatal]
  - Premature baby [Fatal]
  - Ventricular fibrillation [Fatal]
  - Cardiac failure [Fatal]
  - Respiratory distress [Fatal]
  - Maternal exposure during pregnancy [Fatal]
  - Right atrial dilatation [Unknown]
  - Renal failure [Fatal]
  - Anaemia [Fatal]
  - Metabolic acidosis [Fatal]
  - Patent ductus arteriosus [Unknown]
  - Congestive cardiomyopathy [Fatal]
  - Mitral valve incompetence [Unknown]
  - Aortic valve incompetence [Unknown]
